FAERS Safety Report 8889021 (Version 1)
Quarter: 2012Q4

REPORT INFORMATION
  Report Type: 
  Country: US (occurrence: US)
  Receive Date: 20121106
  Receipt Date: 20121106
  Transmission Date: 20130627
  Serious: No
  Sender: FDA-Public Use
  Company Number: US-ASTRAZENECA-2012SE17949

PATIENT
  Age: 59 Year
  Sex: Male

DRUGS (2)
  1. TOPROL XL [Suspect]
     Route: 048
  2. TOPROL XL [Suspect]
     Route: 048

REACTIONS (8)
  - Malaise [Unknown]
  - Angina pectoris [Unknown]
  - Cardiac disorder [Unknown]
  - Palpitations [Unknown]
  - Sleep disorder [Unknown]
  - Insomnia [Unknown]
  - Fatigue [Unknown]
  - Intentional drug misuse [Unknown]
